FAERS Safety Report 24979419 (Version 1)
Quarter: 2025Q1

REPORT INFORMATION
  Report Type: Spontaneous
  Country: CN (occurrence: CN)
  Receive Date: 20250218
  Receipt Date: 20250218
  Transmission Date: 20250408
  Serious: Yes (Hospitalization, Disabling)
  Sender: Haleon PLC
  Company Number: CN-HALEON-2228372

PATIENT
  Age: 51 Year
  Sex: Male
  Weight: 64 kg

DRUGS (1)
  1. IBUPROFEN [Suspect]
     Active Substance: IBUPROFEN
     Indication: Pyrexia
     Dosage: FORMULATION: SUSTAINED-RELEASE CAPSULES
     Route: 048
     Dates: start: 20241212, end: 20241212

REACTIONS (4)
  - Asthenia [Not Recovered/Not Resolved]
  - Blood creatinine increased [Recovering/Resolving]
  - Pollakiuria [Not Recovered/Not Resolved]
  - Decreased appetite [Recovering/Resolving]

NARRATIVE: CASE EVENT DATE: 20241213
